FAERS Safety Report 6656688-8 (Version None)
Quarter: 2010Q1

REPORT INFORMATION
  Report Type: 
  Country: None (occurrence: None)
  Receive Date: 20100324
  Receipt Date: 20100310
  Transmission Date: 20100710
  Serious: Yes (Life-Threatening, Hospitalization)
  Sender: FDA-Public Use
  Company Number: 1-21882437

PATIENT
  Age: 50 Year
  Sex: Male
  Weight: 114.3065 kg

DRUGS (7)
  1. MINOXIDIL [Suspect]
     Indication: HYPERTENSION
     Dosage: 10 MG, TWICE DAILY, ORAL
     Route: 048
     Dates: start: 20070101, end: 20091201
  2. LISINOPRIL [Suspect]
     Dosage: 10 MG, 40 MG, UNK, ORAL
     Route: 048
     Dates: start: 20091201
  3. METOPROLOL/HYDROCHLOROTHIAZIDE [Concomitant]
  4. LIBRIUM (GENERIC BRAND) [Concomitant]
  5. MULTI-VITAMIN [Concomitant]
  6. PRAVASTATIN [Concomitant]
  7. ASPIRIN [Concomitant]

REACTIONS (9)
  - ATRIAL FIBRILLATION [None]
  - BLOOD PRESSURE INCREASED [None]
  - BLOOD VISCOSITY INCREASED [None]
  - CARDIAC DISORDER [None]
  - COUGH [None]
  - DYSPNOEA [None]
  - HEART RATE INCREASED [None]
  - HYPERHIDROSIS [None]
  - OEDEMA PERIPHERAL [None]
